FAERS Safety Report 22635100 (Version 1)
Quarter: 2023Q2

REPORT INFORMATION
  Report Type: Spontaneous
  Country: CN (occurrence: CN)
  Receive Date: 20230623
  Receipt Date: 20230623
  Transmission Date: 20230722
  Serious: Yes (Other)
  Sender: FDA-Public Use
  Company Number: CN-002147023-NVSC2023CN142657

PATIENT
  Age: 33 Year
  Sex: Female
  Weight: 61 kg

DRUGS (15)
  1. ELTROMBOPAG [Suspect]
     Active Substance: ELTROMBOPAG
     Indication: Immune thrombocytopenia
     Dosage: 50 MG, QD
     Route: 048
     Dates: start: 20210919
  2. CYCLOSPORINE [Suspect]
     Active Substance: CYCLOSPORINE
     Indication: Sjogren^s syndrome
     Dosage: 100 MG IN THE MORNING, 75 MG IN THE EVENING
     Route: 048
     Dates: start: 20210917
  3. CYCLOSPORINE [Suspect]
     Active Substance: CYCLOSPORINE
     Indication: Immune thrombocytopenia
     Dosage: 100 MG, BID
     Route: 048
     Dates: start: 20210922
  4. HUMAN IMMUNOGLOBULIN G [Suspect]
     Active Substance: HUMAN IMMUNOGLOBULIN G
     Indication: Immune thrombocytopenia
     Dosage: 20 G, BIW (20G,IV GTT,2 D /WEEK)
     Route: 042
     Dates: start: 20210917
  5. HUMAN IMMUNOGLOBULIN G [Suspect]
     Active Substance: HUMAN IMMUNOGLOBULIN G
     Dosage: 20 G, BIW (20G,IV GTT,2 D /WEEK)
     Route: 042
     Dates: start: 20210924, end: 20210925
  6. HUMAN IMMUNOGLOBULIN G [Suspect]
     Active Substance: HUMAN IMMUNOGLOBULIN G
     Dosage: 20 G, BIW (20G,IV GTT,2 D /WEEK)
     Route: 042
     Dates: start: 20210928
  7. PREDNISONE [Suspect]
     Active Substance: PREDNISONE
     Indication: Sjogren^s syndrome
     Dosage: 15 MG, QD
     Route: 048
     Dates: start: 20210916, end: 20210928
  8. PREDNISONE [Suspect]
     Active Substance: PREDNISONE
     Indication: Immune thrombocytopenia
  9. HYDROXYCHLOROQUINE [Suspect]
     Active Substance: HYDROXYCHLOROQUINE
     Indication: Sjogren^s syndrome
     Dosage: 200 MG, QD
     Route: 048
     Dates: start: 20210916
  10. ALFACALCIDOL [Suspect]
     Active Substance: ALFACALCIDOL
     Indication: Osteoporosis prophylaxis
     Dosage: 0.5 UG, QD
     Route: 048
     Dates: start: 20210916
  11. CALCIUM CARBONATE [Suspect]
     Active Substance: CALCIUM CARBONATE
     Indication: Osteoporosis prophylaxis
     Dosage: 600 MG, QD
     Route: 048
     Dates: start: 20210916
  12. FERRIC POLYSACCHARIDE COMPLEX [Suspect]
     Active Substance: FERRIC POLYSACCHARIDE COMPLEX
     Indication: Anaemia
     Dosage: 150 MG, QD
     Route: 048
     Dates: start: 20210916
  13. METHYLPREDNISOLONE [Suspect]
     Active Substance: METHYLPREDNISOLONE
     Indication: Immune thrombocytopenia
     Dosage: 80 MG, QD  (80 MG,IV GTT)
     Route: 042
     Dates: start: 20210928
  14. METHYLPREDNISOLONE [Suspect]
     Active Substance: METHYLPREDNISOLONE
     Dosage: 60 MG, QD (60 MG,IV GTT)
     Route: 042
     Dates: start: 20211003
  15. METHYLPREDNISOLONE [Suspect]
     Active Substance: METHYLPREDNISOLONE
     Dosage: 40 MG, QD (40 MG,IV GTT)
     Route: 042
     Dates: start: 20211008

REACTIONS (3)
  - Premature delivery [Unknown]
  - Product use in unapproved indication [Unknown]
  - Maternal exposure during pregnancy [Unknown]
